FAERS Safety Report 7252348-3 (Version None)
Quarter: 2011Q1

REPORT INFORMATION
  Report Type: 
  Country: None (occurrence: None)
  Receive Date: 20110129
  Receipt Date: 20100119
  Transmission Date: 20110831
  Serious: No
  Sender: FDA-Public Use
  Company Number: US-ABBOTT-08P-163-0483451-00

PATIENT
  Sex: Female

DRUGS (4)
  1. HUMIRA [Suspect]
     Indication: RHEUMATOID ARTHRITIS
     Route: 058
  2. UNKNOWN ASTHMA MEDICATION [Concomitant]
     Indication: ASTHMA
  3. UNKNOWN PAIN MEDICATION [Concomitant]
     Indication: PAIN
  4. METHOTREXATE [Concomitant]
     Indication: PRODUCT USED FOR UNKNOWN INDICATION

REACTIONS (5)
  - STOMATITIS [None]
  - FURUNCLE [None]
  - PRURITUS [None]
  - PARAESTHESIA [None]
  - SKIN LESION [None]
